FAERS Safety Report 6211886-2 (Version None)
Quarter: 2009Q2

REPORT INFORMATION
  Report Type: 
  Country: None (occurrence: None)
  Receive Date: 20090529
  Receipt Date: 20090518
  Transmission Date: 20091009
  Serious: Yes (Other)
  Sender: FDA-Public Use
  Company Number: RENA-1000444

PATIENT
  Age: 58 Year
  Sex: Male
  Weight: 62.3 kg

DRUGS (12)
  1. RENAGEL [Suspect]
     Indication: HYPERPHOSPHATAEMIA
     Dosage: 2.4 G, BID, ORAL
     Route: 048
  2. HECTOROL [Concomitant]
  3. ATENOLOL [Concomitant]
  4. LOVASTATIN [Concomitant]
  5. INSULIN [Concomitant]
  6. SENSIPAR [Concomitant]
  7. FOSRENOL [Concomitant]
  8. ASPIRIN [Concomitant]
  9. COZAAR [Concomitant]
  10. NORVASC [Concomitant]
  11. MINOXIDIL [Concomitant]
  12. PHOSLO [Concomitant]

REACTIONS (5)
  - BLOOD CALCIUM DECREASED [None]
  - BLOOD PARATHYROID HORMONE INCREASED [None]
  - CONVULSION [None]
  - HYPERCALCAEMIA [None]
  - HYPERPHOSPHATAEMIA [None]
